FAERS Safety Report 18658655 (Version 1)
Quarter: 2020Q4

REPORT INFORMATION
  Report Type: Spontaneous
  Country: IT (occurrence: IT)
  Receive Date: 20201224
  Receipt Date: 20201224
  Transmission Date: 20210114
  Serious: Yes (Other)
  Sender: FDA-Public Use
  Company Number: IT-HIKMA PHARMACEUTICALS USA INC.-IT-H14001-20-52900

PATIENT
  Age: 25 Year
  Sex: Male

DRUGS (2)
  1. METHYLPREDNISOLONE HEMISUCCINATE [Suspect]
     Active Substance: METHYLPREDNISOLONE HEMISUCCINATE
     Indication: LOCAL REACTION
  2. METHYLPREDNISOLONE HEMISUCCINATE [Suspect]
     Active Substance: METHYLPREDNISOLONE HEMISUCCINATE
     Indication: ALLERGY TO ARTHROPOD STING
     Dosage: UNKNOWN
     Route: 065

REACTIONS (3)
  - Type I hypersensitivity [Unknown]
  - Eyelid oedema [Unknown]
  - Respiratory symptom [Unknown]
